FAERS Safety Report 18942594 (Version 1)
Quarter: 2021Q1

REPORT INFORMATION
  Report Type: Not Available
  Country: US (occurrence: US)
  Receive Date: 20210225
  Receipt Date: 20210225
  Transmission Date: 20210420
  Serious: Yes (Hospitalization)
  Sender: FDA-Public Use
  Company Number: US-NEUROCRINE BIOSCIENCES INC.-2021NBI00717

PATIENT
  Age: 64 Year
  Sex: Female

DRUGS (3)
  1. INGREZZA [Suspect]
     Active Substance: VALBENAZINE
     Indication: CHOREA
     Route: 048
     Dates: start: 20200708
  2. GABAPENTIN. [Concomitant]
     Active Substance: GABAPENTIN
  3. LITHIUM. [Concomitant]
     Active Substance: LITHIUM

REACTIONS (3)
  - Drug interaction [Unknown]
  - Weight decreased [Unknown]
  - Off label use [Unknown]
